FAERS Safety Report 22140727 (Version 5)
Quarter: 2023Q4

REPORT INFORMATION
  Report Type: Report from Study
  Country: US (occurrence: US)
  Receive Date: 20230327
  Receipt Date: 20231129
  Transmission Date: 20240109
  Serious: No
  Sender: FDA-Public Use
  Company Number: US-002147023-NVSC2023US070559

PATIENT
  Sex: Female

DRUGS (1)
  1. XIIDRA [Suspect]
     Active Substance: LIFITEGRAST
     Indication: Dry eye
     Dosage: 5 PERCENT (50 MG/ML), BID
     Route: 047
     Dates: start: 20230321

REACTIONS (7)
  - Swelling of eyelid [Recovered/Resolved]
  - Ocular hyperaemia [Recovering/Resolving]
  - Blepharitis [Recovering/Resolving]
  - Eye pain [Recovering/Resolving]
  - Eyelid irritation [Unknown]
  - Eye irritation [Unknown]
  - Lacrimation increased [Recovering/Resolving]
